FAERS Safety Report 14196753 (Version 1)
Quarter: 2017Q4

REPORT INFORMATION
  Report Type: Spontaneous
  Country: US (occurrence: US)
  Receive Date: 20171116
  Receipt Date: 20171116
  Transmission Date: 20180321
  Serious: No
  Sender: FDA-Public Use
  Company Number: US-GALDERMA-US16007843

PATIENT
  Sex: Female

DRUGS (1)
  1. METROGEL [Suspect]
     Active Substance: METRONIDAZOLE
     Indication: ROSACEA
     Route: 061

REACTIONS (4)
  - Blister [Recovered/Resolved]
  - Underdose [Recovered/Resolved]
  - Inappropriate schedule of drug administration [Recovered/Resolved]
  - Dyspnoea [Recovered/Resolved]
